FAERS Safety Report 8010268 (Version 6)
Quarter: 2013Q2

REPORT INFORMATION
  Report Type: Spontaneous
  Country: GB (occurrence: GB)
  Receive Date: 20110627
  Receipt Date: 20130610
  Transmission Date: 20140414
  Serious: Yes (Death, Disabling, Other)
  Sender: FDA-Public Use
  Company Number: PHFR2011GB03125

PATIENT
  Age: 56 Year
  Sex: Female

DRUGS (8)
  1. CLOZARIL [Suspect]
     Indication: SCHIZOPHRENIA
     Dosage: 500 MG, NOCTE
     Route: 048
     Dates: start: 20031128
  2. CLOZARIL [Suspect]
     Dosage: 450 MG, NOCTE
     Route: 048
     Dates: start: 20110609
  3. ARIPIPRAZOLE [Concomitant]
     Indication: PSYCHOTIC DISORDER
     Dosage: 10 MG, QD
     Route: 048
  4. METFORMIN [Concomitant]
     Route: 048
  5. OXYBUTYNIN [Concomitant]
     Route: 048
  6. DIAZEPAM [Concomitant]
     Route: 048
  7. ERLOTINIB [Concomitant]
     Dosage: UNK
  8. FERROUS FUMARATE [Concomitant]
     Route: 048
     Dates: start: 20110411

REACTIONS (2)
  - Lung neoplasm malignant [Fatal]
  - Haemoglobin decreased [Not Recovered/Not Resolved]
